FAERS Safety Report 6359245-6 (Version None)
Quarter: 2009Q3

REPORT INFORMATION
  Report Type: 
  Country: None (occurrence: None)
  Receive Date: 20090917
  Receipt Date: 20090908
  Transmission Date: 20100115
  Serious: Yes (Other)
  Sender: FDA-Public Use
  Company Number: PHHY2009CA36061

PATIENT
  Sex: Female

DRUGS (3)
  1. ACLASTA [Suspect]
     Indication: OSTEOPOROSIS
     Dosage: 5  MG / YEAR
     Dates: start: 20080821
  2. CALCIUM CARBONATE [Concomitant]
     Route: 048
  3. VITAMIN D [Concomitant]
     Route: 048

REACTIONS (10)
  - BONE DISORDER [None]
  - DEBRIDEMENT [None]
  - ERYTHEMA [None]
  - HYPOPHAGIA [None]
  - JAW OPERATION [None]
  - LYMPHADENOPATHY [None]
  - OSTEONECROSIS [None]
  - PAIN IN JAW [None]
  - SWELLING [None]
  - TOOTH DISORDER [None]
